FAERS Safety Report 16356550 (Version 1)
Quarter: 2019Q2

REPORT INFORMATION
  Report Type: Spontaneous
  Country: ES (occurrence: ES)
  Receive Date: 20190527
  Receipt Date: 20190527
  Transmission Date: 20190711
  Serious: Yes (Other)
  Sender: FDA-Public Use
  Company Number: ES-SA-2019SA137525

PATIENT
  Sex: Male
  Weight: 73 kg

DRUGS (1)
  1. APIDRA [Suspect]
     Active Substance: INSULIN GLULISINE
     Route: 065

REACTIONS (4)
  - Device issue [Unknown]
  - Hyperglycaemia [Unknown]
  - Fatigue [Unknown]
  - Incorrect dose administered by device [Unknown]
